FAERS Safety Report 20346019 (Version 1)
Quarter: 2022Q1

REPORT INFORMATION
  Report Type: Spontaneous
  Country: US (occurrence: None)
  Receive Date: 20220117
  Receipt Date: 20220117
  Transmission Date: 20220424
  Serious: Yes (Death)
  Sender: FDA-Public Use
  Company Number: None

PATIENT
  Age: 86 Year
  Sex: Female

DRUGS (11)
  1. XOLAIR [Suspect]
     Active Substance: OMALIZUMAB
     Indication: Chronic obstructive pulmonary disease
     Dosage: FREQUENCY : MONTHLY;?
     Route: 058
     Dates: start: 20190402, end: 20211129
  2. ASMANEX [Suspect]
     Active Substance: MOMETASONE FUROATE
  3. CRESTOR [Suspect]
     Active Substance: ROSUVASTATIN CALCIUM
  4. DEXILANT [Suspect]
     Active Substance: DEXLANSOPRAZOLE
  5. DULERA [Suspect]
     Active Substance: FORMOTEROL FUMARATE DIHYDRATE\MOMETASONE FUROATE
  6. LEVOTHYROXINE [Suspect]
     Active Substance: LEVOTHYROXINE
  7. PREDNISONE [Suspect]
     Active Substance: PREDNISONE
  8. RABEPRAZOLE [Suspect]
     Active Substance: RABEPRAZOLE
  9. SINGULAIR [Suspect]
     Active Substance: MONTELUKAST SODIUM
  10. SPIRIVA [Suspect]
     Active Substance: TIOTROPIUM BROMIDE MONOHYDRATE
  11. XOLAIR [Suspect]
     Active Substance: OMALIZUMAB

REACTIONS (1)
  - Death [None]

NARRATIVE: CASE EVENT DATE: 20211129
